FAERS Safety Report 9863781 (Version 2)
Quarter: 2014Q1

REPORT INFORMATION
  Report Type: Spontaneous
  Country: US (occurrence: US)
  Receive Date: 20140203
  Receipt Date: 20140217
  Transmission Date: 20141002
  Serious: No
  Sender: FDA-Public Use
  Company Number: US-GILEAD-2014-0093277

PATIENT
  Age: 65 Year
  Sex: Male

DRUGS (4)
  1. SOVALDI [Suspect]
     Indication: CHRONIC HEPATITIS C
     Dosage: 400 MG, QD
     Route: 048
  2. SOVALDI [Suspect]
     Dosage: 400 MG, BID
     Route: 048
  3. RIBAVIRIN [Concomitant]
  4. PEGINTRON /01543001/ [Concomitant]

REACTIONS (1)
  - Overdose [Recovered/Resolved]
